FAERS Safety Report 20305171 (Version 2)
Quarter: 2022Q1

REPORT INFORMATION
  Report Type: Spontaneous
  Country: DE (occurrence: DE)
  Receive Date: 20220106
  Receipt Date: 20220126
  Transmission Date: 20220423
  Serious: Yes (Hospitalization, Other)
  Sender: FDA-Public Use
  Company Number: DE-ADRED-07232-01

PATIENT
  Age: 86 Year
  Sex: Female

DRUGS (4)
  1. CANDESARTAN CILEXETIL\HYDROCHLOROTHIAZIDE [Suspect]
     Active Substance: CANDESARTAN CILEXETIL\HYDROCHLOROTHIAZIDE
     Indication: Product used for unknown indication
     Dosage: UNK UNK, QD (32|25 MG, 1-0-0-0, RETARD-TABLETTEN)
     Route: 048
  2. PROPRANOLOL [Concomitant]
     Active Substance: PROPRANOLOL HYDROCHLORIDE
     Dosage: 10 MG, 1-0-0-0, TABLETTEN
     Route: 048
  3. OPIPRAMOL [Concomitant]
     Active Substance: OPIPRAMOL
     Dosage: UNK, PRN, 1 AS NECESSARY
     Route: 048
  4. ATORVASTATIN [Concomitant]
     Active Substance: ATORVASTATIN
     Dosage: 10 MG, 0-0-1-0, TABLETTEN
     Route: 048

REACTIONS (6)
  - Depressed level of consciousness [Recovering/Resolving]
  - Syncope [Recovering/Resolving]
  - Confusional state [Recovering/Resolving]
  - Seizure [Recovering/Resolving]
  - Circulatory collapse [Recovering/Resolving]
  - Product monitoring error [Recovered/Resolved]

NARRATIVE: CASE EVENT DATE: 20210713
